FAERS Safety Report 6702487-8 (Version None)
Quarter: 2010Q2

REPORT INFORMATION
  Report Type: 
  Country: None (occurrence: None)
  Receive Date: 20100429
  Receipt Date: 20100422
  Transmission Date: 20101027
  Serious: Yes (Other)
  Sender: FDA-Public Use
  Company Number: B0650228A

PATIENT
  Sex: Female

DRUGS (1)
  1. THIOGUANINE [Suspect]
     Indication: CROHN'S DISEASE
     Dosage: 20MG PER DAY
     Route: 065
     Dates: start: 20081001

REACTIONS (1)
  - LIVER FUNCTION TEST ABNORMAL [None]
